FAERS Safety Report 6183666-8 (Version None)
Quarter: 2009Q2

REPORT INFORMATION
  Report Type: 
  Country: None (occurrence: None)
  Receive Date: 20090508
  Receipt Date: 20090119
  Transmission Date: 20091009
  Serious: Yes (Death)
  Sender: FDA-Public Use
  Company Number: US-PFIZER INC-2008154160

PATIENT
  Age: 18 Year
  Sex: Female

DRUGS (7)
  1. ALPRAZOLAM [Suspect]
     Route: 048
  2. PRAZOSIN HCL [Suspect]
     Route: 048
  3. SERTRALINE HCL [Suspect]
     Route: 048
  4. ETHANOL [Suspect]
     Route: 048
  5. LAMOTRIGINE [Suspect]
     Route: 048
  6. QUETIAPINE [Suspect]
     Route: 048
  7. VALPROIC ACID [Suspect]
     Route: 048

REACTIONS (1)
  - COMPLETED SUICIDE [None]
